FAERS Safety Report 9845854 (Version 1)
Quarter: 2014Q1

REPORT INFORMATION
  Report Type: Spontaneous
  Country: US (occurrence: None)
  Receive Date: 20140122
  Receipt Date: 20140122
  Transmission Date: 20141002
  Serious: Yes (Death)
  Sender: FDA-Public Use
  Company Number: B0960144A

PATIENT
  Age: 51 Year
  Sex: Female

DRUGS (9)
  1. BUPROPION HYDROCHLORIDE UNSPECIFIED TABLET (GENERIC) (BUPROPION HYDROCHLORIDE) [Suspect]
     Route: 048
  2. DIPHENHYDRAMINE (FORMULATION UNKNOWN) (GENERIC) (DIPHENHYDRAMINE) [Suspect]
     Route: 048
  3. DILTIAZEM HYDROCHLORIDE (FORMULATION UNKNOWN) (GENERIC) (DILTIAZEM HYDROCHLORIDE) [Suspect]
     Route: 048
  4. METOPROLOL CAPSULE EXTENDED RELEASE (GENERIC) (METOPROLOL) [Suspect]
     Route: 048
  5. TRAMADOL HYDROCHLORIDE (FORMULATION UNKNOWN) (GENERIC) (TRAMADOL HYDROCHLORIDE) [Suspect]
     Route: 048
  6. OXCARBAZEPINE (FORMULATION UNKNOWN) (GENERIC) (OXCARBAZEPINE) [Suspect]
     Route: 048
  7. TRAZODONE (FORMULATION UNKNOWN) (GENERIC) (TRAZODONE) [Suspect]
     Route: 048
  8. TOPIRAMATE (FORMULATION UNKNOWN) (GENERIC) (TOPIRAMATE) [Suspect]
     Route: 048
  9. GABAPENTIN (FORMULATION UNKNOWN) (GENERIC) (GABAPENTIN) [Suspect]
     Route: 048

REACTIONS (3)
  - Completed suicide [None]
  - Drug abuse [None]
  - Overdose [None]
